FAERS Safety Report 7413737-7 (Version None)
Quarter: 2011Q2

REPORT INFORMATION
  Report Type: 
  Country: None (occurrence: None)
  Receive Date: 20110413
  Receipt Date: 20110410
  Transmission Date: 20111010
  Serious: Yes (Hospitalization)
  Sender: FDA-Public Use
  Company Number: DE-ABBOTT-11P-062-0718241-00

PATIENT
  Weight: 66 kg

DRUGS (3)
  1. CORTISONE [Concomitant]
     Indication: PRODUCT USED FOR UNKNOWN INDICATION
     Dates: start: 20110203
  2. AZATHIOPRIN [Concomitant]
     Indication: CROHN'S DISEASE
     Dosage: PER DAY
     Dates: start: 20040804
  3. HUMIRA [Suspect]
     Indication: RHEUMATOID ARTHRITIS
     Route: 058
     Dates: start: 20100429

REACTIONS (1)
  - COLONIC STENOSIS [None]
